FAERS Safety Report 24348915 (Version 4)
Quarter: 2025Q4

REPORT INFORMATION
  Report Type: Spontaneous
  Country: CA (occurrence: CA)
  Receive Date: 20240923
  Receipt Date: 20251031
  Transmission Date: 20260117
  Serious: Yes (Hospitalization, Other)
  Sender: AUROBINDO
  Company Number: CA-AUROBINDO-AUR-APL-2024-044993

PATIENT
  Age: 53 Year
  Sex: Male

DRUGS (22)
  1. ACYCLOVIR [Suspect]
     Active Substance: ACYCLOVIR
     Indication: Herpes simplex
     Dosage: 10 MILLIGRAM/KILOGRAM, 3 TIMES A DAY (1 EVERY 8 HOURS)
     Route: 042
     Dates: start: 2017
  2. CEPHALEXIN [Suspect]
     Active Substance: CEPHALEXIN
     Indication: Antibiotic therapy
     Dosage: UNK
     Route: 048
  3. CEPHALEXIN [Suspect]
     Active Substance: CEPHALEXIN
     Indication: Herpes simplex
  4. VALACYCLOVIR HYDROCHLORIDE [Suspect]
     Active Substance: VALACYCLOVIR HYDROCHLORIDE
     Indication: Herpes simplex
     Dosage: UNK,  HIGH DOSE (EVERY 4 WEEKS)
     Route: 048
  5. VALACYCLOVIR HYDROCHLORIDE [Suspect]
     Active Substance: VALACYCLOVIR HYDROCHLORIDE
     Indication: Superinfection bacterial
     Dosage: UNK
     Route: 065
  6. CIDOFOVIR [Suspect]
     Active Substance: CIDOFOVIR
     Indication: Herpes simplex
     Dosage: UNK
     Route: 061
     Dates: start: 2020
  7. CIDOFOVIR [Suspect]
     Active Substance: CIDOFOVIR
     Dosage: UNK
     Route: 042
     Dates: start: 2020
  8. FOSCARNET [Suspect]
     Active Substance: FOSCARNET
     Indication: Herpes simplex
     Dosage: 90 MILLIGRAM/KILOGRAM, TWO TIMES A DAY
     Route: 042
  9. FOSCARNET [Suspect]
     Active Substance: FOSCARNET
     Dosage: 1 PERCENT
     Route: 061
  10. FOSCARNET [Suspect]
     Active Substance: FOSCARNET
     Dosage: 90 MILLIGRAM/KILOGRAM (1 EVERY 12 DAYS)
     Route: 042
  11. IMIQUIMOD [Suspect]
     Active Substance: IMIQUIMOD
     Indication: Herpes simplex
     Dosage: UNK
     Route: 061
     Dates: start: 2018
  12. PRITELIVIR [Suspect]
     Active Substance: PRITELIVIR
     Indication: Herpes simplex
     Dosage: 400 MILLIGRAM, DAILY
     Route: 065
     Dates: start: 2022
  13. PRITELIVIR [Suspect]
     Active Substance: PRITELIVIR
     Dosage: 100 MILLIGRAM, DAILY
     Route: 065
     Dates: start: 2022
  14. CIDOFOVIR [Suspect]
     Active Substance: CIDOFOVIR
     Indication: Oral herpes
     Dosage: UNK
     Route: 061
  15. CIDOFOVIR [Suspect]
     Active Substance: CIDOFOVIR
     Dosage: UNK
     Route: 042
  16. ABACAVIR [Concomitant]
     Active Substance: ABACAVIR
     Indication: HIV infection
     Dosage: UNK
     Route: 065
  17. DOLUTEGRAVIR [Concomitant]
     Active Substance: DOLUTEGRAVIR
     Indication: HIV infection
     Dosage: UNK
     Route: 065
  18. LAMIVUDINE [Concomitant]
     Active Substance: LAMIVUDINE
     Indication: HIV infection
     Dosage: UNK
     Route: 065
  19. CEPHALEXIN [Concomitant]
     Active Substance: CEPHALEXIN
     Indication: Antibiotic therapy
     Dosage: UNK
     Route: 048
  20. FOSCARNET [Concomitant]
     Active Substance: FOSCARNET
     Indication: Oral herpes
     Dosage: UNK
     Route: 061
  21. FOSCARNET [Concomitant]
     Active Substance: FOSCARNET
     Dosage: UNK
     Route: 042
  22. FOSCARNET [Concomitant]
     Active Substance: FOSCARNET
     Dosage: 90 MILLIGRAM/KILOGRAM, TWO TIMES A DAY
     Route: 042

REACTIONS (4)
  - Drug ineffective [Unknown]
  - Drug resistance [Unknown]
  - Therapy partial responder [Unknown]
  - Treatment failure [Unknown]
